FAERS Safety Report 7757158-6 (Version None)
Quarter: 2011Q3

REPORT INFORMATION
  Report Type: 
  Country: None (occurrence: None)
  Receive Date: 20110916
  Receipt Date: 20110906
  Transmission Date: 20111222
  Serious: Yes (Hospitalization, Other)
  Sender: FDA-Public Use
  Company Number: DE-GENENTECH-323239

PATIENT
  Sex: Male
  Weight: 115 kg

DRUGS (10)
  1. BISOPROLOL FUMARATE [Concomitant]
     Indication: ATRIAL FIBRILLATION
     Dosage: 10 MG, UNK
     Route: 048
  2. MABTHERA [Suspect]
     Dosage: 175 MG/M2, UNK
     Route: 042
     Dates: start: 20110201, end: 20110201
  3. METFORMIN HCL [Concomitant]
     Indication: DIABETES MELLITUS
     Dosage: 1000 MG, UNK
     Route: 048
  4. ASPIRIN [Concomitant]
     Indication: CARDIOVASCULAR EVENT PROPHYLAXIS
     Dosage: 100 MG, UNK
     Route: 048
  5. PREDNISONE [Concomitant]
     Indication: PRODUCT USED FOR UNKNOWN INDICATION
     Dosage: 100 MG, UNK
     Route: 042
     Dates: start: 20110104, end: 20110105
  6. MABTHERA [Suspect]
     Indication: B-CELL LYMPHOMA
     Dosage: 375 MG/M2, UNK
     Route: 042
     Dates: start: 20101201, end: 20110105
  7. BENDAMUSTINE [Suspect]
     Indication: B-CELL LYMPHOMA
     Dosage: 90 MG/M2, UNK
     Route: 042
     Dates: start: 20101201, end: 20110106
  8. BENDAMUSTINE [Suspect]
     Dosage: UNK
     Route: 042
  9. ALLOPURINOL [Concomitant]
     Indication: HYPERURICAEMIA
     Dosage: 300 MG, UNK
     Route: 048
  10. CORTISONE ACETATE [Concomitant]
     Indication: PRODUCT USED FOR UNKNOWN INDICATION
     Dosage: UNK

REACTIONS (11)
  - INFUSION RELATED REACTION [None]
  - INFECTION [None]
  - ATRIAL FIBRILLATION [None]
  - ARTHRALGIA [None]
  - LACERATION [None]
  - BLOOD PRESSURE DECREASED [None]
  - OEDEMA [None]
  - BLOOD GLUCOSE DECREASED [None]
  - GASTROENTERITIS NOROVIRUS [None]
  - DUODENAL ULCER HAEMORRHAGE [None]
  - SYNCOPE [None]
